FAERS Safety Report 11619902 (Version 4)
Quarter: 2016Q1

REPORT INFORMATION
  Report Type: Spontaneous
  Country: US (occurrence: US)
  Receive Date: 20151012
  Receipt Date: 20160125
  Transmission Date: 20160525
  Serious: Yes (Hospitalization, Other)
  Sender: FDA-Public Use
  Company Number: US-PFIZER INC-2015335878

PATIENT
  Age: 77 Year
  Sex: Female
  Weight: 65 kg

DRUGS (14)
  1. BIOTIN [Concomitant]
     Active Substance: BIOTIN
     Dosage: 5 MG, UNK
  2. FISH OIL CONCENTRATE [Concomitant]
     Dosage: 1000 MG, UNK
  3. OCUVITE [Concomitant]
     Active Substance: VITAMINS
     Dosage: 150 MG, UNK (6 MG-150 MG CAP)
  4. SIMVASTATIN. [Concomitant]
     Active Substance: SIMVASTATIN
     Dosage: 20 MG, UNK
  5. PROLIA [Concomitant]
     Active Substance: DENOSUMAB
     Dosage: UNK(Q6 MONTHS)
  6. CALCIUM 600 PLUS VITAMIN D3 [Concomitant]
     Dosage: UNK UNK, DAILY (CALCIUM 600MG, VITAMIN D3 (1500)-200 UNIT)
  7. VITAMIN B12 [Concomitant]
     Active Substance: CYANOCOBALAMIN
     Dosage: 1000 MEQ, UNK
  8. WARFARIN [Concomitant]
     Active Substance: WARFARIN
     Dosage: 5 MG, UNK
  9. AROMASIN [Suspect]
     Active Substance: EXEMESTANE
     Indication: NEOPLASM RECURRENCE
     Dosage: 25 MG, 1X/DAY
     Route: 048
     Dates: start: 200108, end: 2015
  10. MULTIVITAMIN /00097801/ [Concomitant]
     Active Substance: VITAMINS
  11. METOPROLOL SUCCINATE. [Concomitant]
     Active Substance: METOPROLOL SUCCINATE
     Dosage: 25 MG, UNK
  12. AROMASIN [Suspect]
     Active Substance: EXEMESTANE
     Indication: BREAST CANCER STAGE I
  13. OCUVITE [Concomitant]
     Active Substance: VITAMINS
     Dosage: 150 MG, UNK (30 UNIT)
  14. DILTIAZEM HYDROCHLORIDE EXTENDED RELEASE [Concomitant]
     Active Substance: DILTIAZEM HYDROCHLORIDE
     Dosage: 300 MG, UNK

REACTIONS (3)
  - Condition aggravated [Not Recovered/Not Resolved]
  - Osteoporosis [Not Recovered/Not Resolved]
  - Hot flush [Unknown]
